FAERS Safety Report 10185223 (Version 1)
Quarter: 2014Q2

REPORT INFORMATION
  Report Type: Spontaneous
  Country: CA (occurrence: CA)
  Receive Date: 20140521
  Receipt Date: 20140521
  Transmission Date: 20141212
  Serious: Yes (Hospitalization)
  Sender: FDA-Public Use
  Company Number: CA-PFIZER INC-2014134912

PATIENT
  Sex: Male

DRUGS (1)
  1. TOVIAZ [Suspect]
     Dosage: UNK
     Dates: start: 2014

REACTIONS (4)
  - Loss of consciousness [Recovered/Resolved]
  - Amylase increased [Recovered/Resolved]
  - Pancreatitis [Recovered/Resolved]
  - Hyponatraemia [Recovered/Resolved]
